FAERS Safety Report 25940351 (Version 2)
Quarter: 2025Q4

REPORT INFORMATION
  Report Type: Spontaneous
  Country: US (occurrence: US)
  Receive Date: 20251020
  Receipt Date: 20251119
  Transmission Date: 20260118
  Serious: No
  Sender: PFIZER
  Company Number: US-PFIZER INC-202500021795

PATIENT
  Age: 78 Year
  Sex: Female
  Weight: 79.819 kg

DRUGS (9)
  1. SOMAVERT [Suspect]
     Active Substance: PEGVISOMANT
     Indication: Acromegaly
     Dosage: 30 MG/DAY
  2. SOMAVERT [Suspect]
     Active Substance: PEGVISOMANT
     Indication: Hypothalamo-pituitary disorder
     Dosage: UNK
     Dates: start: 202309
  3. SOMAVERT [Suspect]
     Active Substance: PEGVISOMANT
     Dosage: UNK
     Dates: start: 2024
  4. SOMAVERT [Suspect]
     Active Substance: PEGVISOMANT
     Dosage: 30 MG 4X PER WEEK (EVERY OTHER DAY)
     Dates: start: 2024
  5. SOMAVERT [Suspect]
     Active Substance: PEGVISOMANT
     Dosage: INJECT 30 MG, SUBCUTANEOUS, 5 DAYS A WEEK
     Route: 058
  6. SOMAVERT [Suspect]
     Active Substance: PEGVISOMANT
     Dosage: 20MG PRE-FILLED SYRINGE
  7. SOMAVERT [Suspect]
     Active Substance: PEGVISOMANT
     Dosage: RECONSTITUTED AS DIRECTED SUBCUTANEOUS EVERY OTHER DAY/30MG EVERY OTHER DAY FOR TOTAL OF 120MG PER W
     Route: 058
  8. MYCAPSSA [Concomitant]
     Active Substance: OCTREOTIDE
     Dosage: UNK
     Dates: start: 202309
  9. MYCAPSSA [Concomitant]
     Active Substance: OCTREOTIDE
     Dosage: UNK
     Dates: start: 2024, end: 202408

REACTIONS (5)
  - Dyspnoea [Unknown]
  - Insulin-like growth factor increased [Unknown]
  - Blood growth hormone increased [Unknown]
  - Dyspnoea exertional [Unknown]
  - Off label use [Unknown]

NARRATIVE: CASE EVENT DATE: 20240101
